FAERS Safety Report 11629377 (Version 1)
Quarter: 2015Q4

REPORT INFORMATION
  Report Type: Spontaneous
  Country: US (occurrence: None)
  Receive Date: 20151013
  Receipt Date: 20151013
  Transmission Date: 20160304
  Serious: No
  Sender: FDA-Public Use
  Company Number: None

PATIENT
  Age: 51 Year
  Sex: Male
  Weight: 77.11 kg

DRUGS (5)
  1. MULTIPLE VITAMIN [Concomitant]
     Active Substance: VITAMINS
  2. GENERIC VICODIN [Concomitant]
  3. ONE A DAY [Concomitant]
  4. ASPIRIN. [Concomitant]
     Active Substance: ASPIRIN
  5. HYDROCODONE/ACETAMINAPHINE 5-325MG AUROBINDO [Suspect]
     Active Substance: ACETAMINOPHEN\HYDROCODONE
     Indication: PAIN
     Dosage: 5-325 MG/90 TABLETS
     Route: 048
     Dates: start: 20151004, end: 20151011

REACTIONS (1)
  - Drug ineffective [None]

NARRATIVE: CASE EVENT DATE: 20151003
